FAERS Safety Report 5476720-7 (Version None)
Quarter: 2007Q4

REPORT INFORMATION
  Report Type: 
  Country: None (occurrence: None)
  Receive Date: 20071002
  Receipt Date: 20071002
  Transmission Date: 20080405
  Serious: Yes (Other)
  Sender: FDA-Public Use
  Company Number: None

PATIENT
  Age: 49 Year
  Sex: Male
  Weight: 81.6475 kg

DRUGS (1)
  1. LOPERAMIDE [Suspect]
     Indication: DIARRHOEA

REACTIONS (4)
  - ABNORMAL BEHAVIOUR [None]
  - LOGORRHOEA [None]
  - MANIA [None]
  - PERSONALITY CHANGE [None]
